FAERS Safety Report 9271810 (Version 1)
Quarter: 2013Q2

REPORT INFORMATION
  Report Type: Spontaneous
  Country: US (occurrence: US)
  Receive Date: 20130506
  Receipt Date: 20130506
  Transmission Date: 20140414
  Serious: No
  Sender: FDA-Public Use
  Company Number: US-ASTRAZENECA-2013SE26546

PATIENT
  Age: 74 Year
  Sex: Male
  Weight: 62.6 kg

DRUGS (1)
  1. NEXIUM [Suspect]
     Indication: GASTROOESOPHAGEAL REFLUX DISEASE
     Route: 048
     Dates: start: 20130416

REACTIONS (3)
  - Therapeutic response unexpected [Unknown]
  - Constipation [Unknown]
  - Off label use [Unknown]
